FAERS Safety Report 19807017 (Version 1)
Quarter: 2021Q3

REPORT INFORMATION
  Report Type: Report from Study
  Country: IT (occurrence: IT)
  Receive Date: 20210908
  Receipt Date: 20210908
  Transmission Date: 20211014
  Serious: Yes (Hospitalization)
  Sender: FDA-Public Use
  Company Number: IT-DSJP-DSE-2021-128567

PATIENT
  Age: 74 Year
  Sex: Female

DRUGS (6)
  1. LEVODOPA [Concomitant]
     Active Substance: LEVODOPA
     Indication: PRODUCT USED FOR UNKNOWN INDICATION
     Dosage: UNK
  2. DILTIAZEM. [Suspect]
     Active Substance: DILTIAZEM
     Indication: ATRIAL FIBRILLATION
     Dosage: 1 DF, QD
     Route: 048
     Dates: start: 20210624, end: 20210720
  3. RASAGILINE MESILATE [Concomitant]
     Active Substance: RASAGILINE MESYLATE
     Indication: PARKINSON^S DISEASE
     Dosage: 1 MG
     Route: 048
  4. BENSERAZIDE [Concomitant]
     Active Substance: BENSERAZIDE
     Indication: PARKINSON^S DISEASE
     Dosage: 625 MG
     Route: 048
  5. LIXIANA [Suspect]
     Active Substance: EDOXABAN TOSYLATE
     Indication: ATRIAL FIBRILLATION
     Dosage: 60 MG, QD
     Route: 048
     Dates: start: 20210624, end: 20210720
  6. CARDIOASPIRIN [Suspect]
     Active Substance: ASPIRIN
     Indication: ATRIAL FIBRILLATION
     Dosage: 100 MG, QD
     Route: 048
     Dates: start: 20210720

REACTIONS (3)
  - Headache [Recovering/Resolving]
  - Hypokinesia [Recovering/Resolving]
  - Bradyphrenia [Recovering/Resolving]

NARRATIVE: CASE EVENT DATE: 20210720
